FAERS Safety Report 18391625 (Version 1)
Quarter: 2020Q4

REPORT INFORMATION
  Report Type: Spontaneous
  Country: US (occurrence: US)
  Receive Date: 20201015
  Receipt Date: 20201015
  Transmission Date: 20210114
  Serious: Yes (Other)
  Sender: FDA-Public Use
  Company Number: None

PATIENT
  Age: 52 Year
  Sex: Female

DRUGS (22)
  1. AMITRIPTYLINE [Concomitant]
     Active Substance: AMITRIPTYLINE
  2. RENVELA [Concomitant]
     Active Substance: SEVELAMER CARBONATE
  3. VENTOLIN HFA [Concomitant]
     Active Substance: ALBUTEROL SULFATE
  4. MONTELUKAST [Concomitant]
     Active Substance: MONTELUKAST SODIUM
  5. ALVESCO HFA [Concomitant]
  6. ASTELIN [Concomitant]
     Active Substance: AZELASTINE HYDROCHLORIDE
  7. FLONASE [Suspect]
     Active Substance: FLUTICASONE PROPIONATE
  8. HYOSCYAMINE. [Concomitant]
     Active Substance: HYOSCYAMINE
  9. LORAZEPAM. [Concomitant]
     Active Substance: LORAZEPAM
  10. IPRATROPIUM [Concomitant]
     Active Substance: IPRATROPIUM
  11. LEVOTHYROXINE. [Concomitant]
     Active Substance: LEVOTHYROXINE
  12. OMEPRAZOLE. [Concomitant]
     Active Substance: OMEPRAZOLE
  13. CYCLOBENZAPRINE. [Concomitant]
     Active Substance: CYCLOBENZAPRINE
  14. CINACALCET. [Concomitant]
     Active Substance: CINACALCET
  15. ATENOLOL. [Concomitant]
     Active Substance: ATENOLOL
  16. ALBUTEROL. [Concomitant]
     Active Substance: ALBUTEROL
  17. MIDODRINE [Concomitant]
     Active Substance: MIDODRINE
  18. VELPHORO [Concomitant]
     Active Substance: SUCROFERRIC OXYHYDROXIDE
  19. OPSUMIT [Suspect]
     Active Substance: MACITENTAN
     Indication: PULMONARY ARTERIAL HYPERTENSION
     Route: 048
     Dates: start: 201701
  20. EMLA [Concomitant]
     Active Substance: LIDOCAINE\PRILOCAINE
  21. CLOBESTASOL TOPICAL CREAM [Concomitant]
  22. NEPHRO VITE RX [Concomitant]
     Active Substance: ASCORBIC ACID\BIOTIN\CALCIUM PANTOTHENATE\CYANOCOBALAMIN\FOLIC ACID\NIACINAMIDE\PYRIDOXINE HYDROCHLORIDE\RIBOFLAVIN\THIAMINE MONONITRATE

REACTIONS (1)
  - Arthralgia [None]

NARRATIVE: CASE EVENT DATE: 20201008
